FAERS Safety Report 4436013-3 (Version None)
Quarter: 2004Q3

REPORT INFORMATION
  Report Type: 
  Country: None (occurrence: None)
  Receive Date: 20040826
  Receipt Date: 20040702
  Transmission Date: 20050211
  Serious: Yes (Hospitalization, Disabling)
  Sender: FDA-Public Use
  Company Number: 2004-BP-05363BP

PATIENT
  Age: 72 Year
  Sex: Female

DRUGS (9)
  1. SPIRIVA [Suspect]
     Indication: CHRONIC OBSTRUCTIVE AIRWAYS DISEASE
     Dosage: 18 MCG (18 MCG), IH
     Route: 055
     Dates: start: 20040601
  2. ALBUTEROL [Concomitant]
  3. LIPITOR [Concomitant]
  4. ENALAPRIL MALEATE [Concomitant]
  5. ACETYLSALICYLIC ACID SRT [Concomitant]
  6. CENTRUM (CENTRUM) [Concomitant]
  7. OSCAL (CALCIUM CARBONATE) [Concomitant]
  8. XENICAL [Concomitant]
  9. OXYGEN (OXYGEN) [Concomitant]

REACTIONS (4)
  - CHEST DISCOMFORT [None]
  - EYE IRRITATION [None]
  - FATIGUE [None]
  - KERATOCONJUNCTIVITIS SICCA [None]
